FAERS Safety Report 8816213 (Version 1)
Quarter: 2012Q4

REPORT INFORMATION
  Report Type: 
  Country: GB (occurrence: GB)
  Receive Date: 20120930
  Receipt Date: 20120930
  Transmission Date: 20130627
  Serious: Yes (Other)
  Sender: FDA-Public Use
  Company Number: GB-ELI_LILLY_AND_COMPANY-GB201209004804

PATIENT
  Age: 69 Year
  Sex: Male

DRUGS (4)
  1. FLUOXETINE HYDROCHLORIDE [Suspect]
     Dosage: 20 mg, bid
  2. FLUOXETINE HYDROCHLORIDE [Suspect]
     Dosage: 20 mg, qd
  3. SIMVASTATIN [Concomitant]
     Dosage: 20 mg, each morning
  4. SIMVASTATIN [Concomitant]
     Dosage: 40 mg, each evening

REACTIONS (3)
  - Depressed level of consciousness [Unknown]
  - Insomnia [Unknown]
  - Nausea [Recovering/Resolving]
